FAERS Safety Report 6424048-0 (Version None)
Quarter: 2009Q4

REPORT INFORMATION
  Report Type: 
  Country: None (occurrence: None)
  Receive Date: 20091102
  Receipt Date: 20091026
  Transmission Date: 20100525
  Serious: Yes (Life-Threatening, Hospitalization, Other)
  Sender: FDA-Public Use
  Company Number: US-ELI_LILLY_AND_COMPANY-US200907003129

PATIENT
  Sex: Female
  Weight: 117.91 kg

DRUGS (20)
  1. CYMBALTA [Suspect]
     Indication: DEPRESSION
     Dosage: 20 MG, 2/D
     Dates: start: 20070611
  2. CYMBALTA [Suspect]
     Dosage: 60 MG, DAILY (1/D)
     Dates: end: 20090501
  3. LEXAPRO [Concomitant]
     Indication: DEPRESSION
     Dosage: 20 MG, DAILY (1/D)
     Dates: end: 20070611
  4. LEXAPRO [Concomitant]
     Dosage: 10 MG, EACH MORNING
     Dates: end: 20090601
  5. KLONOPIN [Concomitant]
     Dosage: 1 D/F, AS NEEDED
  6. KLONOPIN [Concomitant]
     Dosage: 1 MG, 4/D
  7. DEPAKOTE [Concomitant]
     Indication: AFFECTIVE DISORDER
     Dosage: 500 MG, 2/D
  8. AMBIEN [Concomitant]
     Dosage: 10 MG, EACH EVENING
  9. AMBIEN [Concomitant]
     Dosage: 20 MG, EACH EVENING
  10. TRAZODONE [Concomitant]
     Dosage: 300 MG, EACH EVENING
  11. TRAZODONE [Concomitant]
     Dosage: 450 MG, EACH EVENING
  12. LORAZEPAM [Concomitant]
     Dosage: 60 MG, EACH EVENING
  13. LORAZEPAM [Concomitant]
     Dosage: 45 MG, EACH EVENING
  14. OXYCONTIN [Concomitant]
     Dosage: 20 MG, AS NEEDED
  15. LORTAB [Concomitant]
     Indication: PAIN
     Dosage: 1 D/F, UNK
  16. ALPRAZOLAM [Concomitant]
     Dosage: 2 MG, DAILY (1/D)
  17. TIZANIDINE HCL [Concomitant]
     Dosage: 8 MG, 2/D
  18. PROCHLORPERAZINE [Concomitant]
     Dosage: 10 MG, AS NEEDED
  19. ZOFRAN [Concomitant]
     Dosage: 8 MG, AS NEEDED
  20. OMEPRAZOLE [Concomitant]
     Dosage: 20 MG, DAILY (1/D)

REACTIONS (7)
  - ACUTE HEPATIC FAILURE [None]
  - ADVERSE REACTION [None]
  - FALL [None]
  - RENAL FAILURE ACUTE [None]
  - RENAL TUBULAR NECROSIS [None]
  - RESPIRATORY FAILURE [None]
  - SUICIDAL IDEATION [None]
